FAERS Safety Report 4391776-0 (Version None)
Quarter: 2004Q3

REPORT INFORMATION
  Report Type: 
  Country: None (occurrence: None)
  Receive Date: 20040702
  Receipt Date: 20040428
  Transmission Date: 20050211
  Serious: Yes (Other)
  Sender: FDA-Public Use
  Company Number: 2004UW08670

PATIENT
  Age: 46 Year
  Sex: Male
  Weight: 88.4514 kg

DRUGS (3)
  1. CRESTOR [Suspect]
     Indication: HYPERCHOLESTEROLAEMIA
     Dosage: 10 MG QD PO
     Route: 048
     Dates: start: 20040401
  2. AMBIEN [Concomitant]
  3. MULTI-VITAMINS [Concomitant]

REACTIONS (3)
  - DYSGEUSIA [None]
  - FLUSHING [None]
  - ORAL DISCOMFORT [None]
